FAERS Safety Report 12693509 (Version 1)
Quarter: 2016Q3

REPORT INFORMATION
  Report Type: Spontaneous
  Country: US (occurrence: US)
  Receive Date: 20160829
  Receipt Date: 20160829
  Transmission Date: 20161109
  Serious: No
  Sender: FDA-Public Use
  Company Number: US-GLAXOSMITHKLINE-US2016118850

PATIENT
  Sex: Female

DRUGS (5)
  1. ANORO ELLIPTA [Suspect]
     Active Substance: UMECLIDINIUM BROMIDE\VILANTEROL TRIFENATATE
     Indication: CHRONIC OBSTRUCTIVE PULMONARY DISEASE
     Dosage: 1 DF, 1D
     Dates: start: 201608
  2. CARVEDILOL. [Concomitant]
     Active Substance: CARVEDILOL
  3. AZELASTINE [Concomitant]
     Active Substance: AZELASTINE
  4. LOSARTAN. [Concomitant]
     Active Substance: LOSARTAN
  5. ALLEGRA [Concomitant]
     Active Substance: FEXOFENADINE HYDROCHLORIDE

REACTIONS (2)
  - Cough [Not Recovered/Not Resolved]
  - Device use error [Unknown]
